FAERS Safety Report 20140254 (Version 1)
Quarter: 2021Q4

REPORT INFORMATION
  Report Type: Spontaneous
  Country: US (occurrence: US)
  Receive Date: 20211202
  Receipt Date: 20211202
  Transmission Date: 20220303
  Serious: Yes (Other)
  Sender: FDA-Public Use
  Company Number: US-SA-SAC20211202000178

PATIENT
  Sex: Male

DRUGS (13)
  1. DUPIXENT [Suspect]
     Active Substance: DUPILUMAB
     Indication: Asthma
     Dosage: 300 MG, QOW
     Route: 058
     Dates: start: 20210204
  2. ACETYLCYSTEINE [Concomitant]
     Active Substance: ACETYLCYSTEINE
  3. BROMELAINS [Concomitant]
     Active Substance: BROMELAINS
  4. GUAIFENESIN [Concomitant]
     Active Substance: GUAIFENESIN
  5. QUERCETIN [Concomitant]
     Active Substance: QUERCETIN
  6. HYDROCODONE [Concomitant]
     Active Substance: HYDROCODONE
  7. ROSUVASTATIN CALCIUM [Concomitant]
     Active Substance: ROSUVASTATIN CALCIUM
  8. SYNTHROID [Concomitant]
     Active Substance: LEVOTHYROXINE SODIUM
  9. IRBESARTAN [Concomitant]
     Active Substance: IRBESARTAN
  10. SYMBICORT [Concomitant]
     Active Substance: BUDESONIDE\FORMOTEROL FUMARATE DIHYDRATE
  11. FINASTERIDE [Concomitant]
     Active Substance: FINASTERIDE
  12. LORAZEPAM [Concomitant]
     Active Substance: LORAZEPAM
  13. ACETAMINOPHEN [Concomitant]
     Active Substance: ACETAMINOPHEN

REACTIONS (1)
  - Prostate cancer [Unknown]

NARRATIVE: CASE EVENT DATE: 20210101
